FAERS Safety Report 12211281 (Version 1)
Quarter: 2016Q1

REPORT INFORMATION
  Report Type: Spontaneous
  Country: US (occurrence: None)
  Receive Date: 20160324
  Receipt Date: 20160324
  Transmission Date: 20160526
  Serious: Yes (Hospitalization)
  Sender: FDA-Public Use
  Company Number: None

PATIENT
  Age: 61 Year
  Sex: Female

DRUGS (15)
  1. ASPIRIN. [Concomitant]
     Active Substance: ASPIRIN
  2. APAP/CODEINE [Concomitant]
     Active Substance: ACETAMINOPHEN\CODEINE PHOSPHATE
  3. SENNA LAXATIVE [Concomitant]
     Active Substance: SENNOSIDES
  4. AMLODIPINE [Concomitant]
     Active Substance: AMLODIPINE BESYLATE
  5. METHOTREXATE [Concomitant]
     Active Substance: METHOTREXATE
  6. PREDNISONE. [Concomitant]
     Active Substance: PREDNISONE
  7. CEPHALEXIN. [Concomitant]
     Active Substance: CEPHALEXIN
  8. DICLOFENAC [Concomitant]
     Active Substance: DICLOFENAC
  9. DOCQLACE [Concomitant]
     Active Substance: DOCUSATE SODIUM
  10. VITAMIN D3 [Concomitant]
     Active Substance: CHOLECALCIFEROL
  11. XELJANZ [Suspect]
     Active Substance: TOFACITINIB CITRATE
     Indication: RHEUMATOID ARTHRITIS
     Route: 048
     Dates: start: 20151210
  12. DOXYCYC MONO [Concomitant]
  13. HYDROXYCHLOR [Concomitant]
     Active Substance: HYDROXYCHLOROQUINE
  14. METRONIDAZOL [Concomitant]
     Active Substance: METRONIDAZOLE
  15. PROMETHAZINE [Concomitant]
     Active Substance: PROMETHAZINE\PROMETHAZINE HYDROCHLORIDE

REACTIONS (1)
  - Postoperative wound infection [None]

NARRATIVE: CASE EVENT DATE: 20160226
